FAERS Safety Report 9519020 (Version 1)
Quarter: 2013Q1

REPORT INFORMATION
  Report Type: Spontaneous
  Country: US (occurrence: None)
  Receive Date: 20130305
  Receipt Date: 20130305
  Transmission Date: 20140127
  Serious: Yes (Other)
  Sender: FDA-Public Use
  Company Number: 163-21880-12100329

PATIENT
  Age: 86 Year
  Sex: Female

DRUGS (2)
  1. REVLIMID (LENALIDOMIDE)(10 MILLIGRAM, CAPSULES) [Suspect]
     Indication: MYELODYSPLASTIC SYNDROME
     Dosage: 10MG, ONCE EVERY 3 DAYS, PO
     Route: 048
     Dates: start: 20100624
  2. REQUIP (ROPINIROLE HYDROCHLORIDE) (UNKNOWN) [Concomitant]

REACTIONS (1)
  - Sciatica [None]
